FAERS Safety Report 22121267 (Version 3)
Quarter: 2023Q2

REPORT INFORMATION
  Report Type: Report from Study
  Country: US (occurrence: None)
  Receive Date: 20230321
  Receipt Date: 20230412
  Transmission Date: 20230722
  Serious: Yes (Hospitalization)
  Sender: FDA-Public Use
  Company Number: US-ROCHE-3310591

PATIENT
  Age: 61 Year
  Sex: Male
  Weight: 116.5 kg

DRUGS (16)
  1. ATEZOLIZUMAB [Suspect]
     Active Substance: ATEZOLIZUMAB
     Indication: Prostate cancer
     Route: 041
     Dates: start: 20220728
  2. CABOZANTINIB [Suspect]
     Active Substance: CABOZANTINIB
     Indication: Prostate cancer
     Route: 048
     Dates: start: 20220728
  3. ELIGARD [Concomitant]
     Active Substance: LEUPROLIDE ACETATE
  4. OMEPRAZOLE [Concomitant]
     Active Substance: OMEPRAZOLE
     Dates: start: 20230131
  5. ONDANSETRON [Concomitant]
     Active Substance: ONDANSETRON
     Dates: start: 20230131
  6. LORATADINE [Concomitant]
     Active Substance: LORATADINE
     Dates: start: 20230201
  7. DULOXETINE [Concomitant]
     Active Substance: DULOXETINE
     Dates: start: 20190731
  8. BUPROPION [Concomitant]
     Active Substance: BUPROPION
     Dates: start: 20220307
  9. TAMSULOSIN [Concomitant]
     Active Substance: TAMSULOSIN
     Dates: start: 20161019
  10. DICLOFENAC [Concomitant]
     Active Substance: DICLOFENAC
     Dates: start: 20180509
  11. LEVOTHYROXINE [Concomitant]
     Active Substance: LEVOTHYROXINE
     Dates: start: 20190227
  12. IBUPROFEN PM [Concomitant]
     Active Substance: DIPHENHYDRAMINE CITRATE\IBUPROFEN
     Dates: start: 20220908
  13. METHYLPHENIDATE [Concomitant]
     Active Substance: METHYLPHENIDATE
     Dates: start: 20190212
  14. CALCIUM CARBONATE\CHOLECALCIFEROL [Concomitant]
     Active Substance: CALCIUM CARBONATE\CHOLECALCIFEROL
     Dates: start: 20180101
  15. APIXABAN [Concomitant]
     Active Substance: APIXABAN
  16. ROSUVASTATIN [Concomitant]
     Active Substance: ROSUVASTATIN
     Route: 048

REACTIONS (3)
  - Troponin increased [Unknown]
  - Chest pain [Unknown]
  - Cerebrovascular accident [Not Recovered/Not Resolved]

NARRATIVE: CASE EVENT DATE: 20230310
